FAERS Safety Report 25473122 (Version 1)
Quarter: 2025Q2

REPORT INFORMATION
  Report Type: Spontaneous
  Country: US (occurrence: None)
  Receive Date: 20250623
  Receipt Date: 20250623
  Transmission Date: 20250717
  Serious: Yes (Hospitalization)
  Sender: FDA-CTU
  Company Number: None

PATIENT
  Age: 66 Year
  Sex: Male
  Weight: 62 kg

DRUGS (6)
  1. CALASPARGASE PEGOL-MKNL [Suspect]
     Active Substance: CALASPARGASE PEGOL-MKNL
     Indication: Ductal adenocarcinoma of pancreas
     Route: 042
     Dates: start: 20250325, end: 20250325
  2. SIMETHIONE [Concomitant]
  3. ACETAMINOPHEN [Concomitant]
     Active Substance: ACETAMINOPHEN
  4. DABIGATRAN [Concomitant]
     Active Substance: DABIGATRAN
  5. INSULIN GLARGINE-YFGN [Concomitant]
     Active Substance: INSULIN GLARGINE-YFGN
  6. LIPASE-PROTEASE-AMYLASE [Concomitant]

REACTIONS (8)
  - Unresponsive to stimuli [None]
  - Catatonia [None]
  - Blood pressure increased [None]
  - White blood cell count increased [None]
  - Haemoglobin decreased [None]
  - Status epilepticus [None]
  - Delirium [None]
  - Encephalopathy [None]

NARRATIVE: CASE EVENT DATE: 20250402
